FAERS Safety Report 8058995-3 (Version None)
Quarter: 2012Q1

REPORT INFORMATION
  Report Type: 
  Country: None (occurrence: None)
  Receive Date: 20120120
  Receipt Date: 20101220
  Transmission Date: 20120608
  Serious: No
  Sender: FDA-Public Use
  Company Number: US-BAUSCH-2010BL007214

PATIENT
  Age: 63 Year
  Sex: Female

DRUGS (3)
  1. ALAWAY [Suspect]
     Indication: OCULAR HYPERAEMIA
     Route: 047
     Dates: start: 20101124, end: 20101124
  2. ALAWAY [Suspect]
     Indication: OFF LABEL USE
     Route: 047
     Dates: start: 20101124, end: 20101124
  3. ALAWAY [Suspect]
     Indication: EYE IRRITATION
     Route: 047
     Dates: start: 20101124, end: 20101124

REACTIONS (2)
  - EYE IRRITATION [None]
  - ABNORMAL SENSATION IN EYE [None]
